FAERS Safety Report 5595027-0 (Version None)
Quarter: 2008Q1

REPORT INFORMATION
  Report Type: 
  Country: None (occurrence: None)
  Receive Date: 20080117
  Receipt Date: 20080114
  Transmission Date: 20080703
  Serious: Yes (Hospitalization)
  Sender: FDA-Public Use
  Company Number: NL-ASTRAZENECA-2008AC00180

PATIENT
  Age: 612 Month
  Sex: Female
  Weight: 63 kg

DRUGS (4)
  1. ARIMIDEX [Suspect]
     Indication: BREAST CANCER
     Route: 048
     Dates: start: 20070301
  2. PANTOZOL [Concomitant]
     Dates: start: 20060101
  3. CALCICHEW [Concomitant]
     Dates: start: 20070401
  4. CALCICHEW D3 [Concomitant]
     Dates: start: 20070401

REACTIONS (3)
  - ARTHRALGIA [None]
  - MICROVASCULAR ANGINA [None]
  - MYALGIA [None]
